FAERS Safety Report 4694026-0 (Version None)
Quarter: 2005Q2

REPORT INFORMATION
  Report Type: 
  Country: None (occurrence: None)
  Receive Date: 20050616
  Receipt Date: 20050606
  Transmission Date: 20051028
  Serious: Yes (Other)
  Sender: FDA-Public Use
  Company Number: 215272

PATIENT
  Age: 7 Year
  Sex: Male

DRUGS (5)
  1. NUTROPIN [Suspect]
     Indication: HYPOPITUITARISM
  2. THYROID HORMONE (THYROID) [Concomitant]
  3. CORTISONE (CORTISONE ACETATE) [Concomitant]
  4. THYROID HORMONE (THYROID) [Concomitant]
  5. CORTISONE  (CORTISONE ACETATE) [Concomitant]

REACTIONS (4)
  - DIARRHOEA [None]
  - HYPOGLYCAEMIA [None]
  - LEUKAEMIA [None]
  - ORAL INTAKE REDUCED [None]
